FAERS Safety Report 17900505 (Version 1)
Quarter: 2020Q2

REPORT INFORMATION
  Report Type: Spontaneous
  Country: US (occurrence: US)
  Receive Date: 20200615
  Receipt Date: 20200615
  Transmission Date: 20200714
  Serious: Yes (Other)
  Sender: FDA-Public Use
  Company Number: None

PATIENT
  Age: 80 Year
  Sex: Female
  Weight: 56.7 kg

DRUGS (7)
  1. ZOLPIDEM 10MG PO QHS PRN [Concomitant]
     Dates: start: 20200609
  2. PAROXETINE 40MG DAILY [Concomitant]
     Dates: start: 20200610
  3. CEFTRIAXONE 1G IV DAILY [Concomitant]
     Dates: start: 20200609
  4. ENOXAPARIN 40MG SUBQ QHS [Concomitant]
     Dates: start: 20200609
  5. REMDESIVIR. [Suspect]
     Active Substance: REMDESIVIR
     Indication: COVID-19 PNEUMONIA
     Route: 042
     Dates: start: 20200610, end: 20200614
  6. CONVALESCENT PLASMA [Concomitant]
     Active Substance: HUMAN PLASMA
     Dates: start: 20200611, end: 20200611
  7. AZITHROMYCIN 500MG IV DAILY [Concomitant]
     Dates: start: 20200609

REACTIONS (1)
  - Infusion related reaction [None]

NARRATIVE: CASE EVENT DATE: 20200614
